FAERS Safety Report 4645389-3 (Version None)
Quarter: 2005Q2

REPORT INFORMATION
  Report Type: 
  Country: None (occurrence: None)
  Receive Date: 20050425
  Receipt Date: 20050412
  Transmission Date: 20051028
  Serious: Yes (Other)
  Sender: FDA-Public Use
  Company Number: 2005059809

PATIENT

DRUGS (1)
  1. CETIRIZINE HCL [Suspect]
     Indication: ILL-DEFINED DISORDER

REACTIONS (3)
  - HYPOKALAEMIA [None]
  - OVERDOSE [None]
  - TORSADE DE POINTES [None]
